FAERS Safety Report 8109496-5 (Version None)
Quarter: 2012Q1

REPORT INFORMATION
  Report Type: 
  Country: None (occurrence: None)
  Receive Date: 20120202
  Receipt Date: 20120112
  Transmission Date: 20120608
  Serious: No
  Sender: FDA-Public Use
  Company Number: US-AMGEN-USASP2012002480

PATIENT
  Age: 59 Year
  Sex: Female

DRUGS (2)
  1. TREXALL [Concomitant]
     Dosage: UNK
  2. ENBREL [Suspect]
     Indication: RHEUMATOID ARTHRITIS
     Dosage: UNK
     Dates: start: 20110801

REACTIONS (2)
  - DYSURIA [None]
  - CHROMATURIA [None]
